FAERS Safety Report 4989285-0 (Version None)
Quarter: 2006Q1

REPORT INFORMATION
  Report Type: 
  Country: None (occurrence: None)
  Receive Date: 20060309
  Receipt Date: 20050527
  Transmission Date: 20060701
  Serious: Yes (Life-Threatening)
  Sender: FDA-Public Use
  Company Number: 406436

PATIENT
  Age: 15 Year
  Sex: Female

DRUGS (2)
  1. ACCUTANE [Suspect]
     Indication: ACNE CYSTIC
     Dosage: 60 MG DAILY ORAL
     Route: 048
     Dates: start: 20050406, end: 20050526
  2. ACCUTANE [Suspect]
     Indication: SCAR
     Dosage: 60 MG DAILY ORAL
     Route: 048
     Dates: start: 20050406, end: 20050526

REACTIONS (2)
  - IDIOPATHIC THROMBOCYTOPENIC PURPURA [None]
  - PLATELET COUNT DECREASED [None]
